FAERS Safety Report 8396017-5 (Version None)
Quarter: 2012Q2

REPORT INFORMATION
  Report Type: 
  Country: None (occurrence: None)
  Receive Date: 20120530
  Receipt Date: 20120521
  Transmission Date: 20120825
  Serious: Yes (Other)
  Sender: FDA-Public Use
  Company Number: BR-ROCHE-1013584

PATIENT
  Sex: Female

DRUGS (19)
  1. PRELONE [Suspect]
  2. LORATADINE [Concomitant]
  3. LOSARTAN POTASSIUM [Concomitant]
  4. VERAPAMIL HCL [Concomitant]
  5. XOLAIR [Suspect]
     Route: 058
     Dates: start: 20111201
  6. XOLAIR [Suspect]
     Indication: ASTHMA
     Route: 058
     Dates: start: 20101101
  7. HYDROCHLOROTHIAZIDE [Concomitant]
  8. DOMPERIDONE [Concomitant]
  9. XOLAIR [Suspect]
     Route: 058
     Dates: start: 20110829
  10. PRELONE [Suspect]
  11. PRELONE [Suspect]
     Dosage: TAPERING DOSE
  12. FLUTICASONE PROPIONATE/SALMETEROL [Concomitant]
     Dosage: 50/500 UG
  13. PRELONE [Suspect]
     Indication: PRODUCT USED FOR UNKNOWN INDICATION
     Dates: start: 20110920, end: 20111025
  14. PRELONE [Suspect]
     Dosage: FOR 10 DAYS
  15. LEXOTAN [Concomitant]
  16. ACETAMINOPHEN [Concomitant]
  17. XOLAIR [Suspect]
     Route: 058
     Dates: start: 20120511
  18. COMBIVENT [Concomitant]
     Dosage: 20/120 MCG
  19. PANTOPRAZOLE [Concomitant]

REACTIONS (17)
  - TREMOR [None]
  - INSOMNIA [None]
  - ASTHMA [None]
  - RHINITIS ALLERGIC [None]
  - DYSPHONIA [None]
  - IMMUNODEFICIENCY [None]
  - HERPES ZOSTER [None]
  - LUNG DISORDER [None]
  - HERPES VIRUS INFECTION [None]
  - LACRIMATION INCREASED [None]
  - OBSTRUCTIVE AIRWAYS DISORDER [None]
  - RESPIRATORY DISTRESS [None]
  - MUSCLE SPASMS [None]
  - INCORRECT DOSE ADMINISTERED [None]
  - GAIT DISTURBANCE [None]
  - FATIGUE [None]
  - TACHYCARDIA [None]
